FAERS Safety Report 10752163 (Version 1)
Quarter: 2015Q1

REPORT INFORMATION
  Report Type: Spontaneous
  Country: US (occurrence: US)
  Receive Date: 20150130
  Receipt Date: 20150130
  Transmission Date: 20150721
  Serious: Yes (Hospitalization, Other)
  Sender: FDA-Public Use
  Company Number: US-ABBVIE-15P-163-1339323-00

PATIENT
  Sex: Male

DRUGS (2)
  1. TESTIM [Suspect]
     Active Substance: TESTOSTERONE
     Indication: BLOOD TESTOSTERONE DECREASED
     Route: 065
     Dates: start: 2005, end: 201301
  2. ANDROGEL [Suspect]
     Active Substance: TESTOSTERONE
     Indication: BLOOD TESTOSTERONE DECREASED
     Route: 062
     Dates: start: 2005, end: 201301

REACTIONS (11)
  - Impaired work ability [Unknown]
  - Economic problem [Unknown]
  - Anxiety [Unknown]
  - Myocardial infarction [Unknown]
  - Nervous system disorder [Unknown]
  - Ischaemic stroke [Unknown]
  - Injury [Unknown]
  - Emotional distress [Unknown]
  - Amnesia [Unknown]
  - Pain [Unknown]
  - Cardiovascular disorder [Unknown]

NARRATIVE: CASE EVENT DATE: 2010
